FAERS Safety Report 10150450 (Version 1)
Quarter: 2014Q2

REPORT INFORMATION
  Report Type: Spontaneous
  Country: IT (occurrence: IT)
  Receive Date: 20140502
  Receipt Date: 20140502
  Transmission Date: 20141212
  Serious: Yes (Other)
  Sender: FDA-Public Use
  Company Number: IT-WATSON-2014-08662

PATIENT
  Age: 11 Year
  Sex: Male

DRUGS (1)
  1. RISPERIDONE (UNKNOWN) [Suspect]
     Indication: PRODUCT USED FOR UNKNOWN INDICATION
     Dosage: UNK
     Route: 048

REACTIONS (6)
  - Psychotic disorder [Unknown]
  - Hallucination [Unknown]
  - Delusion [Unknown]
  - Aggression [Unknown]
  - Abnormal behaviour [Unknown]
  - Drug ineffective [Unknown]
